FAERS Safety Report 7998554-1 (Version None)
Quarter: 2011Q4

REPORT INFORMATION
  Report Type: 
  Country: None (occurrence: None)
  Receive Date: 20111221
  Receipt Date: 20111212
  Transmission Date: 20120403
  Serious: Yes (Hospitalization)
  Sender: FDA-Public Use
  Company Number: FR-EISAI INC-E2090-01898-SPO-FR

PATIENT
  Sex: Male

DRUGS (7)
  1. ZONEGRAN [Suspect]
     Indication: EPILEPSY
     Route: 048
     Dates: start: 20080401, end: 20080601
  2. URBANYL [Suspect]
     Indication: EPILEPSY
     Dosage: 20 MG
     Route: 048
     Dates: start: 20080601, end: 20090101
  3. DEPAKENE [Suspect]
     Indication: EPILEPSY
     Route: 048
     Dates: end: 20080601
  4. URBANYL [Suspect]
     Dosage: 30 MG
     Route: 048
     Dates: start: 20090101
  5. RISPERDAL CONSTA [Suspect]
     Indication: EPILEPSY
     Route: 030
     Dates: start: 20080401
  6. DEPAKENE [Suspect]
     Route: 048
     Dates: start: 20080601
  7. ZONEGRAN [Suspect]
     Route: 048
     Dates: start: 20080601

REACTIONS (1)
  - THROMBOCYTOPENIA [None]
